FAERS Safety Report 12976803 (Version 1)
Quarter: 2016Q4

REPORT INFORMATION
  Report Type: Report from Study
  Country: BR (occurrence: BR)
  Receive Date: 20161128
  Receipt Date: 20161128
  Transmission Date: 20170207
  Serious: Yes (Other)
  Sender: FDA-Public Use
  Company Number: PHHY2016BR161200

PATIENT
  Age: 48 Year
  Sex: Male
  Weight: 73 kg

DRUGS (2)
  1. DIOVAN AMLO FIX [Suspect]
     Active Substance: AMLODIPINE\VALSARTAN
     Dosage: 0.5 DF (VALSARTAN 160 MG, AMLODIPINE 5 MG), QD
     Route: 048
  2. DIOVAN AMLO FIX [Suspect]
     Active Substance: AMLODIPINE\VALSARTAN
     Indication: HYPERTENSION
     Dosage: 1 DF (VALSARTAN 160 MG, AMLODIPINE 5 MG), QD
     Route: 048

REACTIONS (4)
  - Obesity [Unknown]
  - Blood pressure increased [Unknown]
  - Stress [Unknown]
  - Wrong technique in product usage process [Unknown]
